FAERS Safety Report 9401428 (Version 2)
Quarter: 2017Q2

REPORT INFORMATION
  Report Type: Report from Study
  Country: FR (occurrence: FR)
  Receive Date: 20130715
  Receipt Date: 20170605
  Transmission Date: 20170830
  Serious: Yes (Death, Other)
  Sender: FDA-Public Use
  Company Number: FR-ROCHE-1247757

PATIENT
  Sex: Female

DRUGS (1)
  1. CAPECITABINE. [Suspect]
     Active Substance: CAPECITABINE
     Indication: BREAST CANCER
     Dosage: MEAN DOSE AT 1ST CYCLE 1530 MG/M2/D
     Route: 048

REACTIONS (5)
  - Hypovolaemic shock [Fatal]
  - Thrombocytopenia [Unknown]
  - Renal failure [Unknown]
  - Dyspnoea [Fatal]
  - Diarrhoea [Unknown]
